FAERS Safety Report 15647505 (Version 5)
Quarter: 2019Q1

REPORT INFORMATION
  Report Type: Report from Study
  Country: GR (occurrence: GR)
  Receive Date: 20181122
  Receipt Date: 20190318
  Transmission Date: 20190417
  Serious: Yes (Death, Hospitalization, Other)
  Sender: FDA-Public Use
  Company Number: GR-VIFOR (INTERNATIONAL) INC.-VIT-2018-11573

PATIENT
  Sex: Male
  Weight: 85.7 kg

DRUGS (7)
  1. SALOSPIR [Concomitant]
     Active Substance: ASPIRIN
     Indication: ISCHAEMIC CARDIOMYOPATHY
     Dates: start: 20160707, end: 20181109
  2. NEXIUM [Concomitant]
     Active Substance: ESOMEPRAZOLE MAGNESIUM
     Indication: CHRONIC KIDNEY DISEASE
     Dates: start: 20160706
  3. VELPHORO [Suspect]
     Active Substance: FERRIC OXYHYDROXIDE
     Indication: HYPERPHOSPHATAEMIA
     Route: 048
     Dates: start: 20180328, end: 201811
  4. SINTROM [Concomitant]
     Active Substance: ACENOCOUMAROL
     Dates: start: 20160831, end: 20181109
  5. FOSRENOL [Concomitant]
     Active Substance: LANTHANUM CARBONATE
     Indication: CHRONIC KIDNEY DISEASE
     Dates: start: 20160727, end: 20180327
  6. ABSEAMED [Concomitant]
     Active Substance: ERYTHROPOIETIN
     Indication: CHRONIC KIDNEY DISEASE
     Dates: start: 20170602
  7. SEVELAMER [Concomitant]
     Active Substance: SEVELAMER
     Indication: CHRONIC KIDNEY DISEASE
     Dates: start: 20170922, end: 20180327

REACTIONS (5)
  - Sepsis [Unknown]
  - Melaena [Recovering/Resolving]
  - Faeces discoloured [Recovered/Resolved]
  - Gastrointestinal haemorrhage [Recovering/Resolving]
  - Septic shock [Fatal]

NARRATIVE: CASE EVENT DATE: 201803
